FAERS Safety Report 7071244-8 (Version None)
Quarter: 2010Q4

REPORT INFORMATION
  Report Type: 
  Country: None (occurrence: None)
  Receive Date: 20101029
  Receipt Date: 20101018
  Transmission Date: 20110411
  Serious: Yes (Hospitalization)
  Sender: FDA-Public Use
  Company Number: US-ACTELION-A-US2010-40790

PATIENT
  Sex: Female

DRUGS (2)
  1. BOSENTAN TABLET UNKNOWN US MG [Suspect]
     Indication: PULMONARY ARTERIAL HYPERTENSION
     Dosage: UNK
     Route: 048
     Dates: start: 20090203
  2. COUMADIN [Concomitant]

REACTIONS (4)
  - CHEST DISCOMFORT [None]
  - EMOTIONAL DISTRESS [None]
  - FLUSHING [None]
  - NAUSEA [None]
